FAERS Safety Report 9030521 (Version 9)
Quarter: 2013Q4

REPORT INFORMATION
  Report Type: Spontaneous
  Country: JP (occurrence: JP)
  Receive Date: 20130122
  Receipt Date: 20131030
  Transmission Date: 20140711
  Serious: Yes (Hospitalization, Other)
  Sender: FDA-Public Use
  Company Number: JP-PFIZER INC-2013022510

PATIENT
  Age: 78 Year
  Sex: Male
  Weight: 61.3 kg

DRUGS (3)
  1. INLYTA [Suspect]
     Indication: RENAL CELL CARCINOMA
     Dosage: 5 MG, 2X/DAY
     Route: 048
     Dates: start: 20121205, end: 20121208
  2. INLYTA [Suspect]
     Dosage: 3 MG, 2X/DAY
     Route: 048
     Dates: start: 20121213, end: 20121219
  3. INLYTA [Suspect]
     Dosage: 2 MG, 2X/DAY
     Route: 048
     Dates: start: 20121223, end: 20130113

REACTIONS (3)
  - Interstitial lung disease [Recovered/Resolved]
  - Aortic valve stenosis [Unknown]
  - Hypertension [Unknown]
